FAERS Safety Report 24765970 (Version 1)
Quarter: 2024Q4

REPORT INFORMATION
  Report Type: Spontaneous
  Country: US (occurrence: US)
  Receive Date: 20241223
  Receipt Date: 20241223
  Transmission Date: 20250114
  Serious: Yes (Hospitalization, Other)
  Sender: AMGEN
  Company Number: US-AMGEN-USASP2024247743

PATIENT
  Age: 90 Year
  Sex: Male

DRUGS (2)
  1. REPATHA [Suspect]
     Active Substance: EVOLOCUMAB
     Indication: Blood cholesterol abnormal
     Dosage: UNK UNK, QMO
     Route: 058
  2. PLAVIX [Concomitant]
     Active Substance: CLOPIDOGREL BISULFATE
     Indication: Product used for unknown indication
     Route: 058

REACTIONS (10)
  - Transient ischaemic attack [Unknown]
  - Urinary tract infection [Recovered/Resolved]
  - Hip fracture [Recovered/Resolved]
  - Road traffic accident [Unknown]
  - Bacterial sepsis [Unknown]
  - C-reactive protein increased [Unknown]
  - Back pain [Recovered/Resolved]
  - Blood pressure decreased [Unknown]
  - Visual field defect [Unknown]
  - Therapy interrupted [Unknown]
